FAERS Safety Report 5291261-8 (Version None)
Quarter: 2007Q2

REPORT INFORMATION
  Report Type: 
  Country: None (occurrence: None)
  Receive Date: 20070409
  Receipt Date: 20070404
  Transmission Date: 20071010
  Serious: Yes (Hospitalization)
  Sender: FDA-Public Use
  Company Number: DE-BOEHRINGER INGELHEIM GMBH, GERMANY-2007-DE-01892DE

PATIENT
  Sex: Female

DRUGS (4)
  1. SIFROL [Suspect]
     Indication: PARKINSON'S DISEASE
     Route: 048
     Dates: start: 20051101
  2. SIFROL [Suspect]
     Route: 048
  3. AMANTADINE HCL [Concomitant]
     Indication: PARKINSON'S DISEASE
     Dates: start: 20051101
  4. MADOPAR [Concomitant]
     Indication: PARKINSON'S DISEASE

REACTIONS (1)
  - GENERAL PHYSICAL HEALTH DETERIORATION [None]
